FAERS Safety Report 24208158 (Version 1)
Quarter: 2024Q3

REPORT INFORMATION
  Report Type: Spontaneous
  Country: US (occurrence: US)
  Receive Date: 20240814
  Receipt Date: 20240814
  Transmission Date: 20241017
  Serious: Yes (Other)
  Sender: NOVARTIS
  Company Number: US-002147023-NVSC2024US162580

PATIENT

DRUGS (1)
  1. ENTRESTO [Suspect]
     Active Substance: SACUBITRIL\VALSARTAN
     Indication: Product used for unknown indication
     Dosage: UNK (49/51)
     Route: 065

REACTIONS (8)
  - Cardiomyopathy [Unknown]
  - Chest pain [Unknown]
  - Decreased appetite [Unknown]
  - Ejection fraction decreased [Unknown]
  - Scar [Unknown]
  - Fear [Unknown]
  - Insomnia [Unknown]
  - Dizziness [Unknown]
